FAERS Safety Report 6007130-1 (Version None)
Quarter: 2008Q4

REPORT INFORMATION
  Report Type: 
  Country: None (occurrence: None)
  Receive Date: 20081217
  Receipt Date: 20080220
  Transmission Date: 20090506
  Serious: No
  Sender: FDA-Public Use
  Company Number: US-ASTRAZENECA-2008UW01796

PATIENT
  Age: 76 Year
  Sex: Female
  Weight: 84.5 kg

DRUGS (10)
  1. CRESTOR [Suspect]
     Indication: LOW DENSITY LIPOPROTEIN INCREASED
     Dosage: SAMPLE PACKET
     Route: 048
     Dates: start: 20080120, end: 20080124
  2. CRESTOR [Suspect]
     Route: 048
     Dates: start: 20080128
  3. PROCARDIA [Concomitant]
  4. THIAZIDE [Concomitant]
  5. SYNTHROID [Concomitant]
  6. LISINOPRIL [Concomitant]
  7. TOPROL-XL [Concomitant]
  8. ASPIRIN [Concomitant]
  9. MULTI-VITAMIN [Concomitant]
  10. FISH OIL [Concomitant]

REACTIONS (3)
  - ABDOMINAL DISCOMFORT [None]
  - DIZZINESS [None]
  - DYSGEUSIA [None]
